FAERS Safety Report 7982616-9 (Version None)
Quarter: 2011Q4

REPORT INFORMATION
  Report Type: 
  Country: None (occurrence: None)
  Receive Date: 20111215
  Receipt Date: 20111206
  Transmission Date: 20120403
  Serious: Yes (Other)
  Sender: FDA-Public Use
  Company Number: JP-GLAXOSMITHKLINE-B0763905A

PATIENT
  Sex: Male

DRUGS (6)
  1. SILECE [Concomitant]
     Route: 065
  2. AKINETON [Concomitant]
     Route: 065
  3. SEROQUEL [Concomitant]
     Route: 048
  4. LAMICTAL [Suspect]
     Indication: BIPOLAR DISORDER
     Dosage: 25MG PER DAY
     Route: 048
     Dates: start: 20111011, end: 20111110
  5. UNKNOWN DRUG [Concomitant]
     Route: 048
  6. LITHIUM CARBONATE [Concomitant]
     Route: 048

REACTIONS (8)
  - ASPARTATE AMINOTRANSFERASE INCREASED [None]
  - PRURITUS [None]
  - ALANINE AMINOTRANSFERASE INCREASED [None]
  - VOMITING [None]
  - NAUSEA [None]
  - RASH [None]
  - BLOOD LACTATE DEHYDROGENASE INCREASED [None]
  - ABDOMINAL PAIN [None]
